FAERS Safety Report 16129987 (Version 3)
Quarter: 2019Q2

REPORT INFORMATION
  Report Type: Spontaneous
  Country: BR (occurrence: BR)
  Receive Date: 20190328
  Receipt Date: 20190404
  Transmission Date: 20190711
  Serious: Yes (Death, Hospitalization, Other)
  Sender: FDA-Public Use
  Company Number: BR-ABBVIE-19K-020-2721766-00

PATIENT
  Age: 67 Year
  Sex: Female

DRUGS (1)
  1. HUMIRA [Suspect]
     Active Substance: ADALIMUMAB
     Indication: COLITIS ULCERATIVE
     Route: 058

REACTIONS (5)
  - Neoplasm malignant [Unknown]
  - Hospitalisation [Unknown]
  - Abdominal abscess [Unknown]
  - Death [Fatal]
  - Gastrointestinal necrosis [Unknown]

NARRATIVE: CASE EVENT DATE: 201904
